FAERS Safety Report 8337490-8 (Version None)
Quarter: 2012Q2

REPORT INFORMATION
  Report Type: 
  Country: None (occurrence: None)
  Receive Date: 20120504
  Receipt Date: 20120425
  Transmission Date: 20120825
  Serious: Yes (Life-Threatening, Hospitalization)
  Sender: FDA-Public Use
  Company Number: JP-EISAI INC-E7389-01987-CLI-JP

PATIENT
  Sex: Female
  Weight: 56 kg

DRUGS (23)
  1. GRANISETRON [Concomitant]
     Indication: PROPHYLAXIS
     Route: 041
  2. EURAX [Concomitant]
     Route: 065
  3. HALAVEN [Suspect]
     Indication: BREAST CANCER RECURRENT
     Route: 041
     Dates: start: 20110817, end: 20110907
  4. LOXOMARIN [Concomitant]
     Route: 048
  5. PACIF [Concomitant]
     Route: 048
  6. SOLU-CORTEF [Concomitant]
     Route: 041
  7. HALAVEN [Suspect]
     Indication: METASTASES TO SKIN
     Route: 041
     Dates: start: 20110921, end: 20111012
  8. FLURBIPROFEN [Concomitant]
     Indication: PAIN PROPHYLAXIS
     Route: 041
  9. GABAPENTIN [Concomitant]
     Route: 048
  10. MORPHINE [Concomitant]
     Route: 048
  11. METRONIDAZOLE [Concomitant]
  12. PROCHLORPERAZINE [Concomitant]
     Indication: PROPHYLAXIS
     Route: 048
  13. INCREMIN [Concomitant]
     Route: 048
  14. AMOXICILLIN [Concomitant]
     Route: 048
  15. MAGMITT [Concomitant]
     Indication: PROPHYLAXIS
     Route: 048
  16. CONCENTRATED RED CELLS [Concomitant]
     Route: 041
  17. HALAVEN [Suspect]
     Route: 041
     Dates: start: 20111019
  18. LEVOFLOXACIN [Concomitant]
     Route: 048
  19. RABEPRAZOLE SODIUM [Concomitant]
     Indication: PROPHYLAXIS
     Route: 048
  20. PERAPRIN [Concomitant]
     Indication: PROPHYLAXIS
     Route: 048
  21. RELIFEN [Concomitant]
     Route: 048
  22. KAKKON-TO [Concomitant]
     Route: 048
  23. BESOFTEN [Concomitant]

REACTIONS (3)
  - SEPSIS [None]
  - FEBRILE NEUTROPENIA [None]
  - NEUTROPENIA [None]
